FAERS Safety Report 9518637 (Version 1)
Quarter: 2013Q3

REPORT INFORMATION
  Report Type: Spontaneous
  Country: FR (occurrence: FR)
  Receive Date: 20130912
  Receipt Date: 20130912
  Transmission Date: 20140515
  Serious: Yes (Life-Threatening)
  Sender: FDA-Public Use
  Company Number: PHHY2013FR099679

PATIENT
  Age: 62 Year
  Sex: Female

DRUGS (3)
  1. ACLASTA [Suspect]
     Indication: OSTEOPOROSIS
     Dosage: 5 MG, UNK
     Route: 042
     Dates: start: 20111108
  2. UVEDOSE [Concomitant]
     Dosage: UNK UKN, EVERY THREE MONTHS
  3. EFFEXOR [Concomitant]
     Dosage: 37.5 MG, EVERY TWO DAYS
     Route: 048

REACTIONS (2)
  - Acute pulmonary oedema [Recovering/Resolving]
  - Cardiac failure [Recovering/Resolving]
